FAERS Safety Report 9468966 (Version 1)
Quarter: 2013Q3

REPORT INFORMATION
  Report Type: Spontaneous
  Country: IT (occurrence: IT)
  Receive Date: 20130821
  Receipt Date: 20130821
  Transmission Date: 20140515
  Serious: Yes (Other)
  Sender: FDA-Public Use
  Company Number: IT-MYLANLABS-2013S1017994

PATIENT
  Age: 13 Year
  Sex: Male

DRUGS (1)
  1. CITALOPRAM [Suspect]
     Indication: PRODUCT USED FOR UNKNOWN INDICATION
     Dates: start: 20130624, end: 20130626

REACTIONS (3)
  - Insomnia [Recovering/Resolving]
  - Drug administration error [Recovered/Resolved]
  - Drug abuse [Recovering/Resolving]
